FAERS Safety Report 8571870 (Version 4)
Quarter: 2014Q1

REPORT INFORMATION
  Report Type: Spontaneous
  Country: US (occurrence: US)
  Receive Date: 20120521
  Receipt Date: 20140110
  Transmission Date: 20141002
  Serious: Yes (Death, Hospitalization)
  Sender: FDA-Public Use
  Company Number: US-B.I. PHARMACEUTICALS,INC./RIDGEFIELD-2012-BP-11042BP

PATIENT
  Age: 72 Year
  Sex: Male
  Weight: 89.81 kg

DRUGS (11)
  1. PRADAXA [Suspect]
     Indication: ATRIAL FIBRILLATION
     Dosage: 300 MG
     Route: 048
     Dates: start: 20110328, end: 20110706
  2. ATENOLOL [Concomitant]
     Dosage: 25 MG
     Route: 048
  3. LISINOPRIL [Concomitant]
     Dosage: 20 MG
     Route: 048
  4. COUMADIN [Concomitant]
     Dosage: 2.5 MG
     Route: 048
  5. PREDNISONE [Concomitant]
     Dosage: 5 MG
     Route: 048
  6. PLAQUENIL [Concomitant]
     Dosage: 400 MG
     Route: 048
  7. METHOTREXATE [Concomitant]
     Dosage: 7.5 MG
     Route: 048
  8. ETANERCEPT [Concomitant]
     Dosage: 50 MG
     Route: 048
  9. HYDROCHLOROTHIAZIDE [Concomitant]
     Dosage: 12.5 MG
     Route: 048
  10. FOLIC ACID [Concomitant]
     Dosage: 1 MG
     Route: 048
  11. SIMVASTATIN [Concomitant]
     Dosage: 40 MG
     Route: 048

REACTIONS (4)
  - Haemorrhagic stroke [Fatal]
  - Gastrointestinal haemorrhage [Fatal]
  - Respiratory failure [Fatal]
  - Ischaemic stroke [Fatal]
